FAERS Safety Report 7305368-4 (Version None)
Quarter: 2011Q1

REPORT INFORMATION
  Report Type: 
  Country: None (occurrence: None)
  Receive Date: 20110222
  Receipt Date: 20110211
  Transmission Date: 20110831
  Serious: Yes (Hospitalization, Other)
  Sender: FDA-Public Use
  Company Number: PHHY2011US11542

PATIENT
  Sex: Male

DRUGS (2)
  1. EXJADE [Suspect]
     Indication: IRON METABOLISM DISORDER
     Dosage: 500 MG, DAILY
     Route: 048
     Dates: end: 20110207
  2. HYDROXYUREA [Concomitant]

REACTIONS (4)
  - FRACTURE [None]
  - WEIGHT DECREASED [None]
  - SPINAL FRACTURE [None]
  - FALL [None]
